FAERS Safety Report 7402413-2 (Version None)
Quarter: 2011Q1

REPORT INFORMATION
  Report Type: 
  Country: None (occurrence: None)
  Receive Date: 20110331
  Receipt Date: 20110315
  Transmission Date: 20110831
  Serious: Yes (Hospitalization)
  Sender: FDA-Public Use
  Company Number: TCI2011A02008

PATIENT
  Age: 73 Year
  Sex: Male

DRUGS (4)
  1. ACTOS [Suspect]
     Indication: TYPE 2 DIABETES MELLITUS
     Dosage: 15 MG (15 MG, 1 D), PER ORAL
     Route: 048
     Dates: start: 20081204, end: 20100830
  2. INSULINS AND ANALOGUES [Concomitant]
  3. ACE INHIBITOR NOS [Concomitant]
  4. CALCIUM CHANNEL BLOCKERS [Concomitant]

REACTIONS (1)
  - LUNG NEOPLASM [None]
